FAERS Safety Report 8023390-X (Version None)
Quarter: 2012Q1

REPORT INFORMATION
  Report Type: 
  Country: None (occurrence: None)
  Receive Date: 20120104
  Receipt Date: 20111230
  Transmission Date: 20120608
  Serious: No
  Sender: FDA-Public Use
  Company Number: US-PFIZER INC-2011317358

PATIENT
  Sex: Female

DRUGS (1)
  1. IBUPROFEN (ADVIL) [Suspect]
     Indication: PAIN
     Dosage: UNK,DAILY
     Dates: start: 20111229

REACTIONS (3)
  - DYSPEPSIA [None]
  - EMOTIONAL DISORDER [None]
  - MALAISE [None]
